FAERS Safety Report 20905132 (Version 1)
Quarter: 2022Q2

REPORT INFORMATION
  Report Type: Report from Study
  Country: TH (occurrence: TH)
  Receive Date: 20220602
  Receipt Date: 20220602
  Transmission Date: 20220721
  Serious: Yes (Hospitalization, Other)
  Sender: FDA-Public Use
  Company Number: TH-Accord-265160

PATIENT
  Age: 68 Year
  Sex: Female

DRUGS (1)
  1. MITOMYCIN [Suspect]
     Active Substance: MITOMYCIN
     Indication: Pterygium operation

REACTIONS (2)
  - Pseudomonas infection [Recovered/Resolved]
  - Scleritis [Recovered/Resolved]
